FAERS Safety Report 15853157 (Version 1)
Quarter: 2019Q1

REPORT INFORMATION
  Report Type: Spontaneous
  Country: US (occurrence: US)
  Receive Date: 20190122
  Receipt Date: 20190122
  Transmission Date: 20190417
  Serious: Yes (Other)
  Sender: FDA-Public Use
  Company Number: US-PFIZER INC-2019028057

PATIENT
  Age: 69 Year
  Sex: Female
  Weight: 82.99 kg

DRUGS (1)
  1. IBRANCE [Suspect]
     Active Substance: PALBOCICLIB
     Indication: BREAST CANCER FEMALE
     Dosage: 125 MG, CYCLIC (DAY 1-21 Q (EVERY) 28 DAYS)
     Route: 048
     Dates: start: 201710

REACTIONS (2)
  - Neuropathy peripheral [Unknown]
  - Nausea [Not Recovered/Not Resolved]
